FAERS Safety Report 10060492 (Version 1)
Quarter: 2014Q2

REPORT INFORMATION
  Report Type: Spontaneous
  Country: PL (occurrence: PL)
  Receive Date: 20140404
  Receipt Date: 20140404
  Transmission Date: 20141212
  Serious: Yes (Hospitalization, Disabling)
  Sender: FDA-Public Use
  Company Number: PL-ACTAVIS-2014-06369

PATIENT
  Age: 55 Year
  Sex: Female
  Weight: 108 kg

DRUGS (2)
  1. CAMITOTIC [Suspect]
     Indication: BREAST CANCER
     Dosage: 208.25 MG, DAILY
     Route: 042
     Dates: start: 20140311, end: 20140319
  2. CAMITOTIC [Suspect]
     Dosage: 208.25 MG, DAILY
     Route: 042
     Dates: start: 20140311, end: 20140319

REACTIONS (8)
  - Skin lesion [Recovering/Resolving]
  - Erythema [Recovering/Resolving]
  - Pruritus [Recovering/Resolving]
  - Pigmentation disorder [Recovering/Resolving]
  - Rash [Recovering/Resolving]
  - Rash pustular [Recovering/Resolving]
  - Sleep disorder [Recovering/Resolving]
  - Hypersensitivity [Recovering/Resolving]
